FAERS Safety Report 5368919-5 (Version None)
Quarter: 2007Q2

REPORT INFORMATION
  Report Type: 
  Country: None (occurrence: None)
  Receive Date: 20070625
  Receipt Date: 20061212
  Transmission Date: 20071010
  Serious: No
  Sender: FDA-Public Use
  Company Number: US-ASTRAZENECA-2006UW27508

PATIENT
  Age: 71 Year
  Sex: Male
  Weight: 83.5 kg

DRUGS (6)
  1. CRESTOR [Suspect]
     Indication: BLOOD CHOLESTEROL INCREASED
     Route: 048
     Dates: start: 20060922, end: 20061117
  2. SYNTHROID [Concomitant]
  3. NIFEDIPINE [Concomitant]
  4. ZESTORETIC [Concomitant]
  5. ZETIA [Concomitant]
  6. ASPIRIN [Concomitant]

REACTIONS (3)
  - ARTHRITIS [None]
  - CONSTIPATION [None]
  - ERECTILE DYSFUNCTION [None]
